FAERS Safety Report 17151427 (Version 1)
Quarter: 2019Q4

REPORT INFORMATION
  Report Type: Report from Study
  Country: ES (occurrence: ES)
  Receive Date: 20191213
  Receipt Date: 20191213
  Transmission Date: 20200122
  Serious: Yes (Death)
  Sender: FDA-Public Use
  Company Number: ES-PFIZER INC-2019536851

PATIENT
  Age: 45 Year
  Sex: Male

DRUGS (4)
  1. VENLAFAXINE HCL [Suspect]
     Active Substance: VENLAFAXINE HYDROCHLORIDE
     Dosage: UNK
  2. MIRTAZAPINE. [Suspect]
     Active Substance: MIRTAZAPINE
     Dosage: UNK
  3. ALPRAZOLAM. [Suspect]
     Active Substance: ALPRAZOLAM
     Dosage: UNK
  4. CLOTIAPINE [Suspect]
     Active Substance: CLOTHIAPINE
     Dosage: UNK

REACTIONS (3)
  - Sudden death [Fatal]
  - Drug abuse [Fatal]
  - Toxicity to various agents [Fatal]
